FAERS Safety Report 7231346-X (Version None)
Quarter: 2011Q1

REPORT INFORMATION
  Report Type: 
  Country: None (occurrence: None)
  Receive Date: 20110107
  Receipt Date: 20101220
  Transmission Date: 20110831
  Serious: Yes (Other)
  Sender: FDA-Public Use
  Company Number: 2010P1003593

PATIENT
  Age: 16 Year
  Sex: Male

DRUGS (6)
  1. AMPICILLIN [Suspect]
     Indication: VOLVULUS
  2. AMPICILLIN [Suspect]
     Indication: COLOSTOMY
  3. CLINDAMYCIN [Suspect]
     Indication: COLOSTOMY
  4. CLINDAMYCIN [Suspect]
     Indication: VOLVULUS
  5. AMICASIN (NO PREF. NAME) [Suspect]
     Indication: VOLVULUS
  6. AMICASIN (NO PREF. NAME) [Suspect]
     Indication: COLOSTOMY

REACTIONS (2)
  - PYREXIA [None]
  - ACUTE GENERALISED EXANTHEMATOUS PUSTULOSIS [None]
